FAERS Safety Report 9157943 (Version 3)
Quarter: 2013Q3

REPORT INFORMATION
  Report Type: Spontaneous
  Country: FR (occurrence: None)
  Receive Date: 20130213
  Receipt Date: 20130722
  Transmission Date: 20140515
  Serious: Yes (Hospitalization)
  Sender: FDA-Public Use
  Company Number: ACO_33835_2013

PATIENT
  Age: 51 Year
  Sex: Female

DRUGS (11)
  1. FAMPRIDINE-SR [Suspect]
     Indication: MULTIPLE SCLEROSIS
     Route: 048
     Dates: start: 20120703
  2. PROZAC (FLUOXETINE HYDROCHLORIDE) [Concomitant]
  3. XANAX [Concomitant]
  4. LIORESAL (BACLOFEN) [Concomitant]
  5. LYRICA (PREGABALIN) [Concomitant]
  6. AMITRIPTYLINE HYDROCHLORIDE [Concomitant]
  7. DANTRIUM [Concomitant]
  8. NOCERTONE [Concomitant]
  9. LOVENOX (ENOXAPARIN SODIUM) [Concomitant]
  10. DEBRIDAT [Concomitant]
  11. BOTULIUM TOXIN TYPE A [Concomitant]

REACTIONS (3)
  - Gait disturbance [None]
  - Fatigue [None]
  - Multiple sclerosis relapse [None]
